FAERS Safety Report 5545619-X (Version None)
Quarter: 2007Q4

REPORT INFORMATION
  Report Type: 
  Country: None (occurrence: None)
  Receive Date: 20071211
  Receipt Date: 20071129
  Transmission Date: 20080405
  Serious: Yes (Hospitalization, Other)
  Sender: FDA-Public Use
  Company Number: DE-ELI_LILLY_AND_COMPANY-DE200708004977

PATIENT
  Sex: Female
  Weight: 68 kg

DRUGS (8)
  1. CYMBALTA [Suspect]
     Indication: DEPRESSION
     Dosage: 60 MG, DAILY (1/D)
     Route: 048
     Dates: start: 20070622, end: 20071021
  2. NOVALGIN [Concomitant]
     Indication: POLYARTHRITIS
     Dosage: 0.25 UNK, UNK
     Route: 048
  3. ASPIRIN [Concomitant]
  4. PANTOPRAZOLE SODIUM [Concomitant]
  5. DECORTIN [Concomitant]
  6. BISOPROLOL FUMARATE [Concomitant]
  7. MTX [Concomitant]
  8. FOSAMAX [Concomitant]

REACTIONS (13)
  - CEREBROVASCULAR ACCIDENT [None]
  - CORONARY ARTERY DISEASE [None]
  - DYSKINESIA [None]
  - GENERAL PHYSICAL HEALTH DETERIORATION [None]
  - HYPOAESTHESIA [None]
  - MUSCLE SPASMS [None]
  - MYOCARDIAL INFARCTION [None]
  - PARESIS [None]
  - POLYARTHRITIS [None]
  - SENILE OSTEOPOROSIS [None]
  - SPEECH DISORDER [None]
  - TREMOR [None]
  - URINARY TRACT INFECTION [None]
